FAERS Safety Report 12602178 (Version 2)
Quarter: 2016Q3

REPORT INFORMATION
  Report Type: Spontaneous
  Country: US (occurrence: US)
  Receive Date: 20160728
  Receipt Date: 20160830
  Transmission Date: 20161109
  Serious: No
  Sender: FDA-Public Use
  Company Number: US-PFIZER INC-2016352688

PATIENT
  Age: 67 Year
  Sex: Female

DRUGS (1)
  1. PRISTIQ EXTENDED-RELEASE [Suspect]
     Active Substance: DESVENLAFAXINE SUCCINATE
     Indication: NERVOUSNESS
     Dosage: 50 MG, 1X/DAY (EVERY MORNING)
     Route: 048

REACTIONS (4)
  - Malaise [Not Recovered/Not Resolved]
  - Nervousness [Not Recovered/Not Resolved]
  - Feeling hot [Not Recovered/Not Resolved]
  - Vision blurred [Recovered/Resolved]
